FAERS Safety Report 11138147 (Version 4)
Quarter: 2015Q3

REPORT INFORMATION
  Report Type: Spontaneous
  Country: US (occurrence: US)
  Receive Date: 20150526
  Receipt Date: 20150720
  Transmission Date: 20151125
  Serious: No
  Sender: FDA-Public Use
  Company Number: US-GILEAD-2015-0154641

PATIENT
  Age: 20 Year
  Sex: Female

DRUGS (2)
  1. HARVONI [Suspect]
     Active Substance: LEDIPASVIR\SOFOSBUVIR
     Indication: HEPATITIS C
     Dosage: UNK
     Route: 065
     Dates: start: 20150422
  2. IMPLANON [Concomitant]
     Active Substance: ETONOGESTREL

REACTIONS (2)
  - Pregnancy test false positive [Unknown]
  - Menorrhagia [Unknown]
